FAERS Safety Report 15286421 (Version 1)
Quarter: 2018Q3

REPORT INFORMATION
  Report Type: Spontaneous
  Country: CA (occurrence: CA)
  Receive Date: 20180816
  Receipt Date: 20180816
  Transmission Date: 20181010
  Serious: Yes (Hospitalization, Other)
  Sender: FDA-Public Use
  Company Number: CA-AKRON, INC.-2053847

PATIENT
  Age: 81 Year
  Sex: Male
  Weight: 68 kg

DRUGS (1)
  1. COSOPT [Suspect]
     Active Substance: DORZOLAMIDE HYDROCHLORIDE\TIMOLOL MALEATE
     Indication: GLAUCOMA
     Route: 047

REACTIONS (7)
  - Visual field defect [Recovering/Resolving]
  - Product deposit [Recovering/Resolving]
  - Ulcerative keratitis [Recovering/Resolving]
  - Vision blurred [Recovering/Resolving]
  - Visual acuity reduced [Recovering/Resolving]
  - Eye pain [Recovering/Resolving]
  - Eye irritation [Recovering/Resolving]
